FAERS Safety Report 8876276 (Version 1)
Quarter: 2012Q4

REPORT INFORMATION
  Report Type: 
  Country: US (occurrence: US)
  Receive Date: 20121030
  Receipt Date: 20121030
  Transmission Date: 20130627
  Serious: No
  Sender: FDA-Public Use
  Company Number: US-ABBOTT-12P-163-0930563-00

PATIENT
  Sex: Female
  Weight: 17.25 kg

DRUGS (3)
  1. KALETRA [Suspect]
     Indication: HIV TEST POSITIVE
     Dates: start: 2009
  2. ZIDOVUDINE [Suspect]
     Indication: HIV TEST POSITIVE
     Dosage: 50mg/5ml
     Route: 048
  3. ZIADEN [Concomitant]
     Indication: HIV TEST POSITIVE
     Dosage: 20 mg/ml
     Route: 048

REACTIONS (2)
  - Drug administration error [Unknown]
  - Medication error [Unknown]
